FAERS Safety Report 13712999 (Version 1)
Quarter: 2017Q3

REPORT INFORMATION
  Report Type: Report from Study
  Country: BR (occurrence: BR)
  Receive Date: 20170704
  Receipt Date: 20170704
  Transmission Date: 20171127
  Serious: Yes (Hospitalization)
  Sender: FDA-Public Use
  Company Number: PHHY2017BR095002

PATIENT
  Sex: Female
  Weight: 64 kg

DRUGS (1)
  1. DIOVAN AMLO FIX [Suspect]
     Active Substance: AMLODIPINE\VALSARTAN
     Indication: PRODUCT USED FOR UNKNOWN INDICATION
     Dosage: 1 DF (VALSARTAN 160 MG, AMLODIPINE 5 MG), QD
     Route: 048
     Dates: start: 2002

REACTIONS (1)
  - Pneumonia [Recovering/Resolving]
